FAERS Safety Report 7604888-2 (Version None)
Quarter: 2011Q3

REPORT INFORMATION
  Report Type: 
  Country: None (occurrence: None)
  Receive Date: 20110712
  Receipt Date: 20110708
  Transmission Date: 20111222
  Serious: Yes (Other)
  Sender: FDA-Public Use
  Company Number: AU-BRISTOL-MYERS SQUIBB COMPANY-15893563

PATIENT
  Age: 69 Year
  Sex: Male

DRUGS (1)
  1. ERBITUX [Suspect]
     Dosage: 5MG/ML VIAL

REACTIONS (2)
  - STEVENS-JOHNSON SYNDROME [None]
  - TOXIC EPIDERMAL NECROLYSIS [None]
